FAERS Safety Report 8307402 (Version 2)
Quarter: 2012Q4

REPORT INFORMATION
  Report Type: 
  Country: FR (occurrence: FR)
  Receive Date: 20111222
  Receipt Date: 20120918
  Transmission Date: 20130627
  Serious: Yes (Death, Life-Threatening)
  Sender: FDA-Public Use
  Company Number: FR-JNJFOC-20111207238

PATIENT
  Age: 62 Year
  Sex: Female

DRUGS (28)
  1. TAVANIC [Suspect]
     Indication: LUNG DISORDER
     Route: 048
     Dates: start: 20110207, end: 20110215
  2. CEFTRIAXONE [Suspect]
     Indication: LUNG DISORDER
     Route: 042
     Dates: start: 20110209, end: 20110212
  3. VALACICLOVIR [Suspect]
     Indication: PRODUCT USED FOR UNKNOWN INDICATION
     Route: 048
     Dates: start: 20110106, end: 20110117
  4. VALACICLOVIR [Suspect]
     Indication: PRODUCT USED FOR UNKNOWN INDICATION
     Route: 048
     Dates: start: 20110201, end: 20110204
  5. VALACICLOVIR [Suspect]
     Indication: PRODUCT USED FOR UNKNOWN INDICATION
     Route: 048
     Dates: start: 20110208, end: 20110217
  6. AUGMENTIN [Suspect]
     Indication: FEBRILE BONE MARROW APLASIA
     Route: 048
     Dates: start: 20110129, end: 20110204
  7. AUGMENTIN [Suspect]
     Indication: FEBRILE BONE MARROW APLASIA
     Route: 042
     Dates: start: 20110208, end: 20110209
  8. PERINDOPRIL [Suspect]
     Indication: CARDIAC FAILURE
     Route: 048
     Dates: start: 20110206, end: 20110217
  9. ALDACTONE [Suspect]
     Indication: CARDIAC FAILURE
     Route: 048
     Dates: start: 20110205, end: 20110216
  10. AMLOR [Suspect]
     Indication: PRODUCT USED FOR UNKNOWN INDICATION
     Route: 048
     Dates: start: 20110205, end: 20110214
  11. TRIFLUCAN [Concomitant]
     Route: 065
     Dates: start: 20110106, end: 20110204
  12. VANCOMYCIN [Concomitant]
     Route: 065
     Dates: start: 20110124, end: 20110220
  13. FLAGYL [Concomitant]
     Route: 065
     Dates: start: 20110118, end: 20110217
  14. CARDENSIEL [Concomitant]
     Route: 065
     Dates: start: 20110205
  15. LASILIX [Concomitant]
     Route: 065
     Dates: start: 20110131
  16. RIVOTRIL [Concomitant]
     Route: 065
  17. RITUXIMAB [Concomitant]
     Route: 065
     Dates: start: 201011, end: 201012
  18. IFOSFAMIDE [Concomitant]
     Route: 065
     Dates: start: 201011, end: 201011
  19. ETOPOSIDE [Concomitant]
     Route: 065
     Dates: start: 201011, end: 201011
  20. GRANOCYTE [Concomitant]
     Route: 065
     Dates: start: 201012, end: 201012
  21. PLERIXAFOR [Concomitant]
     Route: 065
     Dates: start: 201012, end: 201012
  22. BICNU [Concomitant]
     Route: 065
     Dates: start: 20101207, end: 20101207
  23. ARACYTINE [Concomitant]
     Route: 065
     Dates: start: 20101208, end: 20101211
  24. MELPHALAN [Concomitant]
     Route: 065
     Dates: start: 20101212, end: 20101212
  25. TAZOCILLINE [Concomitant]
     Route: 065
     Dates: start: 20110112, end: 20110124
  26. TOBRAMYCIN [Concomitant]
     Route: 065
     Dates: start: 20110116, end: 20110124
  27. CIFLOX (CIPROFLOXACINE) [Concomitant]
     Route: 065
     Dates: start: 20110119, end: 20110125
  28. CILASTATIN W/IMIPENEM [Concomitant]
     Route: 065
     Dates: start: 20110125, end: 20110128

REACTIONS (10)
  - Multi-organ failure [Fatal]
  - Drug reaction with eosinophilia and systemic symptoms [Unknown]
  - Gastrointestinal haemorrhage [Unknown]
  - Cardiac failure [Unknown]
  - Acute graft versus host disease [Unknown]
  - Pyrexia [Unknown]
  - Renal failure [Unknown]
  - Hepatitis cholestatic [Unknown]
  - Rash papular [Unknown]
  - Eosinophilia [Unknown]
